FAERS Safety Report 10386902 (Version 6)
Quarter: 2015Q1

REPORT INFORMATION
  Report Type: Spontaneous
  Country: US (occurrence: US)
  Receive Date: 20140815
  Receipt Date: 20150303
  Transmission Date: 20150720
  Serious: Yes (Other)
  Sender: FDA-Public Use
  Company Number: US-PFIZER INC-2014225106

PATIENT
  Age: 68 Year
  Sex: Male
  Weight: 79 kg

DRUGS (7)
  1. SUTENT [Suspect]
     Active Substance: SUNITINIB MALATE
     Dosage: 50 MG, UNK
     Dates: start: 20140804, end: 20140810
  2. SUTENT [Suspect]
     Active Substance: SUNITINIB MALATE
     Dosage: 12.5 MG, DAILY
     Dates: start: 20141103, end: 20141113
  3. SUTENT [Suspect]
     Active Substance: SUNITINIB MALATE
     Dosage: 12.5 MG, CYCLIC (5 DAYS ON AND 5 DAYS OFF)
  4. OMEPRAZOLE. [Concomitant]
     Active Substance: OMEPRAZOLE
     Dosage: UNK
  5. IBUPROFEN. [Concomitant]
     Active Substance: IBUPROFEN
     Dosage: UNK, AS NEEDED
  6. SPIRIVA [Concomitant]
     Active Substance: TIOTROPIUM BROMIDE MONOHYDRATE
     Dosage: UNK
  7. SYMBICORT [Concomitant]
     Active Substance: BUDESONIDE\FORMOTEROL FUMARATE DIHYDRATE
     Dosage: UNK

REACTIONS (21)
  - Musculoskeletal pain [Unknown]
  - Asthenia [Recovered/Resolved]
  - Petechiae [Recovered/Resolved]
  - Peripheral swelling [Recovered/Resolved]
  - Rash [Unknown]
  - Diarrhoea [Not Recovered/Not Resolved]
  - Peripheral swelling [Recovered/Resolved]
  - Pain in extremity [Recovered/Resolved]
  - Asthenia [Unknown]
  - Peripheral swelling [Unknown]
  - Pyrexia [Recovered/Resolved]
  - Erythema [Recovered/Resolved]
  - Hypertension [Recovered/Resolved]
  - Myalgia [Recovered/Resolved]
  - Skin haemorrhage [Recovered/Resolved]
  - Muscle spasms [Unknown]
  - Fatigue [Unknown]
  - Haematochezia [Recovered/Resolved]
  - Arthralgia [Recovered/Resolved]
  - Nodule [Recovered/Resolved]
  - Dyspepsia [Unknown]

NARRATIVE: CASE EVENT DATE: 2014
